FAERS Safety Report 9159959 (Version 1)
Quarter: 2013Q1

REPORT INFORMATION
  Report Type: Spontaneous
  Country: CA (occurrence: CA)
  Receive Date: 20130313
  Receipt Date: 20130313
  Transmission Date: 20140127
  Serious: Yes (Death, Hospitalization)
  Sender: FDA-Public Use
  Company Number: CA-B.I. PHARMACEUTICALS,INC./RIDGEFIELD-2013-CN-00374CN

PATIENT
  Age: 62 Year
  Sex: Male

DRUGS (5)
  1. PRADAX [Suspect]
     Indication: CEREBROVASCULAR ACCIDENT PROPHYLAXIS
     Dosage: 300 MG
     Dates: start: 201107
  2. PRADAX [Suspect]
     Indication: ATRIAL FIBRILLATION
  3. METFORMIN [Concomitant]
  4. JANUVIA [Concomitant]
  5. CASODEX [Concomitant]

REACTIONS (2)
  - Prostate cancer metastatic [Fatal]
  - Cerebrovascular accident [Unknown]
